FAERS Safety Report 11528445 (Version 1)
Quarter: 2015Q3

REPORT INFORMATION
  Report Type: Spontaneous
  Country: US (occurrence: US)
  Receive Date: 20150921
  Receipt Date: 20150921
  Transmission Date: 20151125
  Serious: No
  Sender: FDA-Public Use
  Company Number: US-TEVA-575661USA

PATIENT
  Sex: Female

DRUGS (2)
  1. CLONAZEPAM. [Suspect]
     Active Substance: CLONAZEPAM
     Indication: FLATULENCE
     Dosage: .5 MILLIGRAM DAILY; 0.5MG Q MORNING
     Route: 065
     Dates: start: 201406
  2. CLONAZEPAM. [Suspect]
     Active Substance: CLONAZEPAM
     Indication: ABDOMINAL DISTENSION

REACTIONS (4)
  - Flatulence [Unknown]
  - Gastrointestinal pain [Unknown]
  - Abdominal distension [Unknown]
  - Product use issue [Unknown]
